FAERS Safety Report 24304716 (Version 1)
Quarter: 2024Q3

REPORT INFORMATION
  Report Type: Spontaneous
  Country: US (occurrence: US)
  Receive Date: 20240910
  Receipt Date: 20240910
  Transmission Date: 20241016
  Serious: No
  Sender: TEVA
  Company Number: US-TEVA-VS-3237509

PATIENT
  Age: 65 Year
  Sex: Female

DRUGS (8)
  1. CEFDINIR [Suspect]
     Active Substance: CEFDINIR
     Indication: Product used for unknown indication
     Route: 065
     Dates: end: 202408
  2. PREDNISONE [Suspect]
     Active Substance: PREDNISONE
     Indication: Product used for unknown indication
     Route: 065
     Dates: end: 20240821
  3. FLONASE [Concomitant]
     Active Substance: FLUTICASONE PROPIONATE
  4. LEXAPRO [Concomitant]
     Active Substance: ESCITALOPRAM OXALATE
  5. LORAZEPAM [Concomitant]
     Active Substance: LORAZEPAM
  6. MONTELUKAST [Concomitant]
     Active Substance: MONTELUKAST SODIUM
  7. SODIUM CHLORIDE [Concomitant]
     Active Substance: SODIUM CHLORIDE
  8. TRILEPTAL [Concomitant]
     Active Substance: OXCARBAZEPINE

REACTIONS (4)
  - Sinusitis [Not Recovered/Not Resolved]
  - Affective disorder [Unknown]
  - Sleep disorder [Unknown]
  - Nausea [Not Recovered/Not Resolved]

NARRATIVE: CASE EVENT DATE: 20240815
